FAERS Safety Report 6235492-9 (Version None)
Quarter: 2009Q2

REPORT INFORMATION
  Report Type: 
  Country: None (occurrence: None)
  Receive Date: 20090618
  Receipt Date: 20080522
  Transmission Date: 20091009
  Serious: No
  Sender: FDA-Public Use
  Company Number: US-ASTRAZENECA-2008UW10489

PATIENT
  Age: 50 Year
  Sex: Female
  Weight: 81.6 kg

DRUGS (1)
  1. RHINOCORT [Suspect]
     Route: 045

REACTIONS (2)
  - ACCIDENTAL EXPOSURE [None]
  - EYE IRRITATION [None]
